FAERS Safety Report 18980878 (Version 2)
Quarter: 2021Q1

REPORT INFORMATION
  Report Type: Spontaneous
  Country: US (occurrence: US)
  Receive Date: 20210308
  Receipt Date: 20210312
  Transmission Date: 20210420
  Serious: Yes (Hospitalization)
  Sender: FDA-Public Use
  Company Number: US-BIOVITRUM-2021US2273

PATIENT
  Sex: Male
  Weight: 9 kg

DRUGS (9)
  1. EPINEPHRINE HC [Concomitant]
  2. POTASSIUM ACETATE. [Concomitant]
     Active Substance: POTASSIUM ACETATE
     Dosage: 2 MEQ/ML VIAL
  3. ENALAPRILAT. [Concomitant]
     Active Substance: ENALAPRILAT
     Dosage: 1.25 MG/ML VIAL
  4. SYNAGIS [Suspect]
     Active Substance: PALIVIZUMAB
     Indication: PREMATURE BABY
  5. FUROSEMIDE. [Concomitant]
     Active Substance: FUROSEMIDE
     Dosage: 10 MG/ML SOLUTION
  6. SYNAGIS [Suspect]
     Active Substance: PALIVIZUMAB
     Indication: VENTRICULAR SEPTAL DEFECT
     Dosage: SYNAGIS 100MG/1ML VL LIQUID
     Route: 030
  7. SYNAGIS [Suspect]
     Active Substance: PALIVIZUMAB
     Indication: TRISOMY 21
  8. MULTI?VITAMIN W?FLUORIDE?IRON [Concomitant]
  9. LEVOTHYROXINE SODIUM. [Concomitant]
     Active Substance: LEVOTHYROXINE SODIUM

REACTIONS (1)
  - Gastroenteritis viral [Unknown]
